FAERS Safety Report 5314948-7 (Version None)
Quarter: 2007Q2

REPORT INFORMATION
  Report Type: 
  Country: None (occurrence: None)
  Receive Date: 20070502
  Receipt Date: 20070418
  Transmission Date: 20071010
  Serious: No
  Sender: FDA-Public Use
  Company Number: US-ELI_LILLY_AND_COMPANY-US200702005694

PATIENT
  Sex: Female

DRUGS (8)
  1. CYMBALTA [Suspect]
     Indication: DEPRESSION
     Dosage: 120 MG, UNK
     Dates: start: 20060101, end: 20070101
  2. LYRICA [Concomitant]
  3. IBUPROFEN [Concomitant]
     Dosage: UNK, AS NEEDED
  4. NEXIUM [Concomitant]
  5. ANAX [Concomitant]
  6. VICODIN [Concomitant]
     Dosage: UNK, AS NEEDED
  7. TRAMADOL HCL [Concomitant]
     Dosage: UNK, AS NEEDED
  8. ZANAFLEX [Concomitant]
     Dosage: UNK, AS NEEDED

REACTIONS (2)
  - ALANINE AMINOTRANSFERASE INCREASED [None]
  - ASPARTATE AMINOTRANSFERASE INCREASED [None]
